FAERS Safety Report 8465342-1 (Version None)
Quarter: 2012Q2

REPORT INFORMATION
  Report Type: 
  Country: None (occurrence: None)
  Receive Date: 20120626
  Receipt Date: 20120623
  Transmission Date: 20120825
  Serious: Yes (Death)
  Sender: FDA-Public Use
  Company Number: PHHY2012FR054012

PATIENT

DRUGS (4)
  1. ANTI-THYMOCYTE GLOBULIN RABBIT NOS [Concomitant]
  2. CYCLOSPORINE [Suspect]
     Indication: PROPHYLAXIS AGAINST GRAFT VERSUS HOST DISEASE
     Dosage: UNK UKN, UNK
  3. CYCLOPHOSPHAMIDE [Concomitant]
  4. BUSULFAN [Concomitant]

REACTIONS (2)
  - HAEMORRHAGIC STROKE [None]
  - MOYAMOYA DISEASE [None]
